FAERS Safety Report 14306801 (Version 2)
Quarter: 2018Q1

REPORT INFORMATION
  Report Type: Report from Study
  Country: None (occurrence: KW)
  Receive Date: 20171220
  Receipt Date: 20180111
  Transmission Date: 20180509
  Serious: Yes (Disabling, Other)
  Sender: FDA-Public Use
  Company Number: KW-ABBVIE-17K-091-2198576-00

PATIENT
  Age: 53 Year
  Sex: Male
  Weight: 65 kg

DRUGS (7)
  1. REMERON [Concomitant]
     Active Substance: MIRTAZAPINE
     Indication: PRODUCT USED FOR UNKNOWN INDICATION
     Route: 048
  2. SINEMET [Concomitant]
     Active Substance: CARBIDOPA\LEVODOPA
     Indication: PRODUCT USED FOR UNKNOWN INDICATION
     Route: 048
  3. DUODOPA [Suspect]
     Active Substance: CARBIDOPA\LEVODOPA
     Indication: PARKINSON^S DISEASE
     Dosage: 15 ML/HOUR IN THE MORNING, CONTINUOUS RATE 3.3 ML/HOUR
     Route: 050
     Dates: start: 20171102, end: 20171212
  4. SEROQUEL [Concomitant]
     Active Substance: QUETIAPINE FUMARATE
     Indication: PRODUCT USED FOR UNKNOWN INDICATION
     Route: 048
  5. DUODOPA [Suspect]
     Active Substance: CARBIDOPA\LEVODOPA
     Dosage: CONTINUOUSLY FOR 16 HOURS A DAY?14.5 ML/HOUR, 3.3 ML/HOUR CONTINUOUS RATE
     Route: 050
     Dates: start: 20171218
  6. STALEVO [Concomitant]
     Active Substance: CARBIDOPA\ENTACAPONE\LEVODOPA
     Indication: PRODUCT USED FOR UNKNOWN INDICATION
     Route: 048
  7. RIVOTRIL [Concomitant]
     Active Substance: CLONAZEPAM
     Indication: PRODUCT USED FOR UNKNOWN INDICATION

REACTIONS (6)
  - Mental disorder [Unknown]
  - Stoma site discharge [Recovered/Resolved]
  - Stoma site erythema [Unknown]
  - Musculoskeletal stiffness [Not Recovered/Not Resolved]
  - Stoma site haemorrhage [Recovered/Resolved]
  - Urinary incontinence [Not Recovered/Not Resolved]

NARRATIVE: CASE EVENT DATE: 2017
